FAERS Safety Report 23110834 (Version 1)
Quarter: 2023Q4

REPORT INFORMATION
  Report Type: Report from Study
  Country: KR (occurrence: KR)
  Receive Date: 20231026
  Receipt Date: 20231026
  Transmission Date: 20240110
  Serious: Yes (Hospitalization, Other)
  Sender: FDA-Public Use
  Company Number: KR-JAZZ-2020-KR-017192

PATIENT
  Age: 5 Year
  Sex: Female
  Weight: 16.9 kg

DRUGS (10)
  1. DEFITELIO [Suspect]
     Active Substance: DEFIBROTIDE SODIUM
     Indication: Venoocclusive disease
     Dosage: 95 MILLIGRAM, QID (INJECTION 200 MILLIGRAM)
     Route: 042
     Dates: start: 20200917, end: 20201016
  2. DEFITELIO [Suspect]
     Active Substance: DEFIBROTIDE SODIUM
     Dosage: 100 MILLIGRAM, QID
     Route: 042
     Dates: start: 20201017, end: 20201108
  3. DEFITELIO [Suspect]
     Active Substance: DEFIBROTIDE SODIUM
     Dosage: 100 MILLIGRAM, QID
     Route: 042
     Dates: start: 20201110, end: 20201116
  4. DEFITELIO [Suspect]
     Active Substance: DEFIBROTIDE SODIUM
     Dosage: 100 MILLIGRAM, QID
     Route: 042
     Dates: start: 20201118
  5. ALPROSTADIL [Suspect]
     Active Substance: ALPROSTADIL
     Indication: Prophylaxis
     Dosage: 15 MICROGRAM, QD
     Route: 042
     Dates: start: 20200912, end: 20201108
  6. ALPROSTADIL [Suspect]
     Active Substance: ALPROSTADIL
     Dosage: 15 MICROGRAM, QD
     Route: 042
     Dates: start: 20201110, end: 20201116
  7. ALPROSTADIL [Suspect]
     Active Substance: ALPROSTADIL
     Dosage: 15 MICROGRAM, QD
     Route: 042
     Dates: start: 20201126, end: 20201129
  8. HEPARIN [Suspect]
     Active Substance: HEPARIN SODIUM
     Indication: Anticoagulant therapy
     Dosage: 1500 INTERNATIONAL UNIT, QD
     Route: 042
     Dates: start: 20200816, end: 20200905
  9. HEPARIN [Suspect]
     Active Substance: HEPARIN SODIUM
     Dosage: 1500 INTERNATIONAL UNIT, QD
     Route: 042
     Dates: start: 20200909, end: 20201116
  10. HEPARIN [Suspect]
     Active Substance: HEPARIN SODIUM
     Dosage: 1500 INTERNATIONAL UNIT, QD
     Route: 042
     Dates: start: 20201118

REACTIONS (3)
  - Haematuria [Recovered/Resolved]
  - Thrombotic microangiopathy [Recovered/Resolved]
  - Off label use [Unknown]

NARRATIVE: CASE EVENT DATE: 20200917
